FAERS Safety Report 9345626 (Version 3)
Quarter: 2013Q2

REPORT INFORMATION
  Report Type: Spontaneous
  Country: DK (occurrence: DK)
  Receive Date: 20130613
  Receipt Date: 20130626
  Transmission Date: 20140414
  Serious: Yes (Other)
  Sender: FDA-Public Use
  Company Number: DK-TEVA-411095ISR

PATIENT
  Age: 32 Year
  Sex: Female
  Weight: 65 kg

DRUGS (1)
  1. METHOTREXATE [Suspect]
     Indication: PSORIASIS
     Dosage: 8 TABLETS ONCE WEEKLY
     Dates: start: 20080610, end: 20090401

REACTIONS (18)
  - Optic neuritis [Not Recovered/Not Resolved]
  - Iridocyclitis [Unknown]
  - Blindness [Unknown]
  - Macular cyst [Unknown]
  - Multiple sclerosis [Unknown]
  - Optic neuropathy [Unknown]
  - Autoimmune disorder [Unknown]
  - Vasculitis [Unknown]
  - Pneumonitis [Not Recovered/Not Resolved]
  - Cough [Not Recovered/Not Resolved]
  - Ocular discomfort [Unknown]
  - Eye pain [Unknown]
  - Arthropathy [Unknown]
  - Pain in jaw [Unknown]
  - Visual acuity reduced [Unknown]
  - Retinal disorder [Unknown]
  - Visual acuity reduced [Unknown]
  - Eye disorder [Unknown]
